FAERS Safety Report 6575246-7 (Version None)
Quarter: 2010Q1

REPORT INFORMATION
  Report Type: 
  Country: None (occurrence: None)
  Receive Date: 20100209
  Receipt Date: 20100128
  Transmission Date: 20100710
  Serious: Yes (Hospitalization, Disabling, Other)
  Sender: FDA-Public Use
  Company Number: US-ROCHE-409447

PATIENT
  Sex: Male
  Weight: 67.6 kg

DRUGS (2)
  1. ACCUTANE [Suspect]
     Route: 048
     Dates: start: 19861016, end: 19870219
  2. ACCUTANE [Suspect]
     Route: 048
     Dates: start: 19960710, end: 19961216

REACTIONS (13)
  - BASAL CELL CARCINOMA [None]
  - COLITIS [None]
  - COLITIS ULCERATIVE [None]
  - CROHN'S DISEASE [None]
  - DRY EYE [None]
  - DRY SKIN [None]
  - ERYTHEMA [None]
  - GASTROINTESTINAL DISORDER [None]
  - HIATUS HERNIA [None]
  - INFLAMMATORY BOWEL DISEASE [None]
  - INTESTINAL HAEMORRHAGE [None]
  - MULTI-ORGAN DISORDER [None]
  - RECTAL HAEMORRHAGE [None]
